FAERS Safety Report 9371044 (Version 2)
Quarter: 2013Q3

REPORT INFORMATION
  Report Type: Spontaneous
  Country: US (occurrence: US)
  Receive Date: 20130627
  Receipt Date: 20130731
  Transmission Date: 20140515
  Serious: Yes (Other)
  Sender: FDA-Public Use
  Company Number: US-PFIZER INC-2013187556

PATIENT
  Age: 65 Year
  Sex: Female
  Weight: 83.9 kg

DRUGS (5)
  1. REVATIO [Suspect]
     Indication: PULMONARY HYPERTENSION
     Dosage: 20 MG, 3X/DAY
     Route: 048
     Dates: start: 2000
  2. REVATIO [Suspect]
     Dosage: 40 MG, 3X/DAY
     Route: 048
  3. TRACLEER [Concomitant]
     Dosage: 125 MG, 2X/DAY
  4. SYNTHROID [Concomitant]
     Indication: HYPERTHYROIDISM
     Dosage: 175 UG, 1X/DAY
  5. WARFARIN SODIUM [Concomitant]
     Indication: ANTICOAGULANT THERAPY
     Dosage: 7.5 MG, 1X/DAY

REACTIONS (3)
  - Prothrombin time prolonged [Unknown]
  - Oedema peripheral [Unknown]
  - Vomiting [Unknown]
